FAERS Safety Report 10784826 (Version 1)
Quarter: 2015Q1

REPORT INFORMATION
  Report Type: Spontaneous
  Country: US (occurrence: US)
  Receive Date: 20150211
  Receipt Date: 20150211
  Transmission Date: 20150721
  Serious: No
  Sender: FDA-Public Use
  Company Number: US-GLAXOSMITHKLINE-A1059133A

PATIENT

DRUGS (1)
  1. LAMICTAL [Suspect]
     Active Substance: LAMOTRIGINE
     Indication: NERVOUS SYSTEM DISORDER
     Dosage: 150 MG TABLETS, REPORTED AS ONLY TAKING HALF A TABLET DAILY
     Route: 065
     Dates: start: 20120202

REACTIONS (1)
  - Drug administration error [Not Recovered/Not Resolved]
